FAERS Safety Report 4450773-7 (Version None)
Quarter: 2004Q3

REPORT INFORMATION
  Report Type: 
  Country: None (occurrence: None)
  Receive Date: 20040914
  Receipt Date: 20040914
  Transmission Date: 20050211
  Serious: Yes (Other)
  Sender: FDA-Public Use
  Company Number: None

PATIENT
  Age: 42 Year
  Sex: Female
  Weight: 56.6996 kg

DRUGS (2)
  1. CELEXA [Suspect]
     Dates: start: 20030701, end: 20040701
  2. WELLBUTRIN [Concomitant]

REACTIONS (2)
  - CONDUCTION DISORDER [None]
  - NERVOUS SYSTEM DISORDER [None]
